FAERS Safety Report 15644040 (Version 2)
Quarter: 2018Q4

REPORT INFORMATION
  Report Type: Spontaneous
  Country: BE (occurrence: BE)
  Receive Date: 20181121
  Receipt Date: 20181212
  Transmission Date: 20190205
  Serious: Yes (Hospitalization, Other)
  Sender: FDA-Public Use
  Company Number: BE-PFIZER INC-2018473555

PATIENT
  Age: 54 Year
  Weight: 95.5 kg

DRUGS (9)
  1. HYDROCORTISONE. [Concomitant]
     Active Substance: HYDROCORTISONE
     Indication: SECONDARY ADRENOCORTICAL INSUFFICIENCY
     Dosage: UNK UNK, 1X/DAY(10-5 MG, 1X/DAY)
     Route: 048
     Dates: start: 201610
  2. SUSTANON [TESTOSTERONE ISOCAPROATE;TESTOSTERONE PHENYLPROPIONATE;TESTO [Concomitant]
     Active Substance: TESTOSTERONE
     Indication: SECONDARY HYPOGONADISM
     Dosage: 1 DF, EVERY 3 WEEKS
     Route: 030
     Dates: start: 201702, end: 20180405
  3. SUSTANON [TESTOSTERONE ISOCAPROATE;TESTOSTERONE PHENYLPROPIONATE;TESTO [Concomitant]
     Active Substance: TESTOSTERONE
     Dosage: UNK UNK, EVERY 3 WEEKS(1/2 DF, EVERY 3 WEEKS)
     Dates: start: 201706
  4. SIPRALEXA [Concomitant]
     Active Substance: ESCITALOPRAM OXALATE
     Indication: DEPRESSION
     Dosage: 10 MG, 1X/DAY
     Route: 048
     Dates: start: 2016
  5. LIPITOR [Concomitant]
     Active Substance: ATORVASTATIN CALCIUM
     Indication: HYPERCHOLESTEROLAEMIA
     Dosage: 40 MG, 1X/DAY
     Route: 048
     Dates: start: 2016
  6. L-THYROXINE [LEVOTHYROXINE] [Concomitant]
     Indication: SECONDARY HYPOTHYROIDISM
     Dosage: 100 UG, 1X/DAY
     Route: 048
     Dates: start: 201610
  7. GENOTONORM [Suspect]
     Active Substance: SOMATROPIN
     Indication: GROWTH HORMONE DEFICIENCY
     Dosage: 0.3 MG, 1X/DAY
     Route: 058
     Dates: start: 201804, end: 201811
  8. SUSTANON [TESTOSTERONE ISOCAPROATE;TESTOSTERONE PHENYLPROPIONATE;TESTO [Concomitant]
     Active Substance: TESTOSTERONE
     Dosage: UNK UNK, EVERY 3 WEEKS(3/4 DF, EVERY 3 WEEKS)
     Route: 030
     Dates: start: 20180405
  9. MINIRIN [DESMOPRESSIN ACETATE] [Concomitant]
     Indication: DIABETES INSIPIDUS
     Dosage: 1 DF, 1X/DAY
     Route: 045
     Dates: start: 201704

REACTIONS (1)
  - Neoplasm recurrence [Recovering/Resolving]

NARRATIVE: CASE EVENT DATE: 20180831
